FAERS Safety Report 7959492-3 (Version None)
Quarter: 2011Q4

REPORT INFORMATION
  Report Type: 
  Country: None (occurrence: None)
  Receive Date: 20111206
  Receipt Date: 20111129
  Transmission Date: 20120403
  Serious: Yes (Other)
  Sender: FDA-Public Use
  Company Number: US-PFIZER INC-2011286954

PATIENT
  Sex: Female

DRUGS (4)
  1. ENBREL [Suspect]
     Indication: RHEUMATOID ARTHRITIS
  2. IBUPROFEN [Suspect]
     Dosage: UNK
  3. METHOTREXATE [Concomitant]
     Dosage: UNK
  4. ENBREL [Suspect]
     Indication: SYSTEMIC LUPUS ERYTHEMATOSUS
     Dosage: 50 MG, QWK
     Dates: start: 20090401, end: 20110817

REACTIONS (3)
  - RHEUMATOID ARTHRITIS [None]
  - MALAISE [None]
  - SYSTEMIC LUPUS ERYTHEMATOSUS [None]
